FAERS Safety Report 4615480-6 (Version None)
Quarter: 2005Q1

REPORT INFORMATION
  Report Type: 
  Country: None (occurrence: None)
  Receive Date: 20050317
  Receipt Date: 20050309
  Transmission Date: 20050727
  Serious: Yes (Life-Threatening)
  Sender: FDA-Public Use
  Company Number: 2004063366

PATIENT
  Age: 48 Year
  Sex: Male

DRUGS (5)
  1. CARDURA XL [Suspect]
     Indication: HYPERTENSION
     Dosage: 4 MG (4 MG, 1 IN 1 D), ORAL
     Route: 048
     Dates: start: 20040728, end: 20040801
  2. MODAFINIL [Suspect]
     Indication: ILL-DEFINED DISORDER
     Dosage: 200 MG (100 MG, 2 IN 1 D), ORAL
     Route: 048
     Dates: start: 20000101
  3. CETIRIZINE (CETIRIZINE) [Concomitant]
  4. RANITIDINE HYDROCHLORIDE [Concomitant]
  5. BENDROFLUMETHIAZIDE (BENDROFLUMETHIAZIDE) [Concomitant]

REACTIONS (3)
  - DRUG INTERACTION INHIBITION [None]
  - RASH [None]
  - THERAPEUTIC RESPONSE DECREASED [None]
